FAERS Safety Report 15246561 (Version 5)
Quarter: 2018Q3

REPORT INFORMATION
  Report Type: Spontaneous
  Country: US (occurrence: US)
  Receive Date: 20180806
  Receipt Date: 20180918
  Transmission Date: 20181010
  Serious: No
  Sender: FDA-Public Use
  Company Number: US-ACTELION-A-US2018-176825

PATIENT
  Age: 51 Year
  Sex: Male
  Weight: 124.26 kg

DRUGS (5)
  1. UPTRAVI [Suspect]
     Active Substance: SELEXIPAG
     Dosage: 800 MCG, BID
     Route: 048
  2. UPTRAVI [Suspect]
     Active Substance: SELEXIPAG
     Indication: PULMONARY ARTERIAL HYPERTENSION
     Dosage: UNK
     Route: 048
  3. UPTRAVI [Suspect]
     Active Substance: SELEXIPAG
     Dosage: 1000 MCG, BID
     Route: 048
  4. ADCIRCA [Concomitant]
     Active Substance: TADALAFIL
  5. OPSUMIT [Suspect]
     Active Substance: MACITENTAN
     Indication: PULMONARY ARTERIAL HYPERTENSION
     Dosage: 10 MG, QD
     Route: 048

REACTIONS (18)
  - Malaise [Recovered/Resolved]
  - Headache [Unknown]
  - Fall [Unknown]
  - Arthralgia [Recovering/Resolving]
  - Pain in jaw [Unknown]
  - Decreased appetite [Unknown]
  - Diarrhoea [Unknown]
  - Paraesthesia [Recovered/Resolved]
  - Back injury [Unknown]
  - Weight decreased [Unknown]
  - Asthenia [Recovered/Resolved]
  - Unevaluable event [Recovered/Resolved]
  - Blood pressure decreased [Unknown]
  - Myalgia [Unknown]
  - Productive cough [Recovered/Resolved]
  - Muscle spasms [Unknown]
  - Dizziness [Unknown]
  - Musculoskeletal stiffness [Unknown]
